FAERS Safety Report 9299052 (Version 3)
Quarter: 2013Q2

REPORT INFORMATION
  Report Type: Report from Study
  Country: US (occurrence: US)
  Receive Date: 20130520
  Receipt Date: 20130621
  Transmission Date: 20140414
  Serious: Yes (Hospitalization)
  Sender: FDA-Public Use
  Company Number: US-ASTRAZENECA-2013SE34171

PATIENT
  Age: 23747 Day
  Sex: Male

DRUGS (5)
  1. AZD6140 [Suspect]
     Indication: CORONARY ARTERY DISEASE
     Route: 048
     Dates: start: 20130305, end: 20130508
  2. METOPROLOL [Suspect]
     Indication: HYPERTENSION
     Route: 048
     Dates: end: 20130509
  3. CRESTOR [Concomitant]
     Indication: HYPERLIPIDAEMIA
     Route: 048
  4. FENTANYL [Concomitant]
     Indication: PAIN
     Route: 062
  5. ASA [Concomitant]
     Route: 048

REACTIONS (4)
  - Sinus bradycardia [Recovered/Resolved]
  - Lower gastrointestinal haemorrhage [Recovered/Resolved]
  - Epistaxis [Recovered/Resolved]
  - Traumatic haemorrhage [Recovered/Resolved]
